FAERS Safety Report 13433721 (Version 5)
Quarter: 2018Q1

REPORT INFORMATION
  Report Type: Spontaneous
  Country: KR (occurrence: KR)
  Receive Date: 20170412
  Receipt Date: 20180201
  Transmission Date: 20180508
  Serious: Yes (Hospitalization, Other)
  Sender: FDA-Public Use
  Company Number: KR-009507513-1704KOR002333

PATIENT
  Age: 85 Year
  Sex: Male

DRUGS (7)
  1. PLAVITOR [Concomitant]
     Indication: ANGINA UNSTABLE
     Dosage: 75 MG, ONCE DAILY
     Route: 048
     Dates: start: 20150930, end: 20161224
  2. ESOMEPRAZOLE MAGNESIUM. [Concomitant]
     Active Substance: ESOMEPRAZOLE MAGNESIUM
     Indication: GASTROOESOPHAGEAL REFLUX DISEASE
     Dosage: 20 MG, ONCE DAILY
     Route: 048
     Dates: start: 20151210, end: 20161224
  3. ATOZET [Suspect]
     Active Substance: ATORVASTATIN CALCIUM\EZETIMIBE
     Indication: DYSLIPIDAEMIA
     Dosage: 1 TABLET, ONCE A DAY
     Route: 048
     Dates: start: 20161013, end: 20161123
  4. DILATREND [Concomitant]
     Active Substance: CARVEDILOL
     Indication: PROPHYLAXIS
     Dosage: 3.125 MG, TWICE DAILY
     Route: 048
     Dates: start: 20150930, end: 20161224
  5. DICETEL [Concomitant]
     Active Substance: PINAVERIUM BROMIDE
     Indication: GASTROOESOPHAGEAL REFLUX DISEASE
     Dosage: 50 MG, TWICE A DAY
     Route: 048
     Dates: start: 20151105, end: 20161224
  6. ASPIRIN. [Concomitant]
     Active Substance: ASPIRIN
     Indication: ANGINA UNSTABLE
     Dosage: 100 MG, ONCE DAILY
     Route: 048
     Dates: start: 20150930, end: 20161224
  7. DIOVAN [Concomitant]
     Active Substance: VALSARTAN
     Indication: PROPHYLAXIS
     Dosage: 40 MG, TWICE DAILY
     Route: 048
     Dates: start: 20150930, end: 20161224

REACTIONS (2)
  - Haemorrhage intracranial [Recovered/Resolved]
  - Hemiplegia [Recovered/Resolved]

NARRATIVE: CASE EVENT DATE: 20161123
